FAERS Safety Report 8035904-4 (Version None)
Quarter: 2012Q1

REPORT INFORMATION
  Report Type: 
  Country: None (occurrence: None)
  Receive Date: 20120111
  Receipt Date: 20120111
  Transmission Date: 20120608
  Serious: No
  Sender: FDA-Public Use
  Company Number: None

PATIENT
  Age: 42 Year
  Sex: Female
  Weight: 110.22 kg

DRUGS (1)
  1. CYPROHEPTADINE HCL [Suspect]
     Indication: SLEEP DISORDER
     Dosage: 6MG
     Route: 048
     Dates: start: 20111203, end: 20120108

REACTIONS (7)
  - DRY MOUTH [None]
  - HALLUCINATION [None]
  - SLEEP TERROR [None]
  - HALLUCINATION, AUDITORY [None]
  - DYSGEUSIA [None]
  - ANXIETY [None]
  - SOMNOLENCE [None]
